FAERS Safety Report 7099163-1 (Version None)
Quarter: 2010Q4

REPORT INFORMATION
  Report Type: 
  Country: None (occurrence: None)
  Receive Date: 20101112
  Receipt Date: 20101103
  Transmission Date: 20110411
  Serious: Yes (Death, Hospitalization, Other)
  Sender: FDA-Public Use
  Company Number: PHBS2008US06757

PATIENT
  Sex: Male

DRUGS (7)
  1. EXJADE [Suspect]
     Indication: IRON OVERLOAD
     Dosage: 1500 MG
     Dates: start: 20080117, end: 20080131
  2. EXJADE [Suspect]
     Dosage: 500 MG
  3. LISINOPRIL [Concomitant]
     Dosage: 5 MG / DAY
     Route: 048
     Dates: end: 20080201
  4. BUMETANIDE [Concomitant]
     Dosage: 2 MG / DAY
     Route: 048
  5. FLEXEN [Concomitant]
     Dosage: 10 MG / DAY
     Route: 048
  6. FLOMAX [Concomitant]
     Dosage: 0.4 MG / DAY
     Route: 048
  7. ZANTAC [Concomitant]
     Dosage: 150 MG / DAY
     Route: 048

REACTIONS (8)
  - DEATH [None]
  - HAEMOLYTIC ANAEMIA [None]
  - OEDEMA [None]
  - RENAL FAILURE ACUTE [None]
  - RENAL FAILURE CHRONIC [None]
  - SEPSIS [None]
  - URINARY TRACT INFECTION [None]
  - URINE OUTPUT DECREASED [None]
